FAERS Safety Report 23828575 (Version 1)
Quarter: 2024Q2

REPORT INFORMATION
  Report Type: Spontaneous
  Country: US (occurrence: US)
  Receive Date: 20240508
  Receipt Date: 20240508
  Transmission Date: 20240716
  Serious: No
  Sender: FDA-Public Use
  Company Number: US-MankindUS-000162

PATIENT
  Age: 80 Year
  Sex: Male
  Weight: 65.77 kg

DRUGS (1)
  1. OFLOXACIN [Suspect]
     Active Substance: OFLOXACIN
     Dosage: STRENGTH: 0.3% ?PKG: 5 ML?OTIC SOLUTION?NDC: 72603-186-01?DOSE: 5 DROPS/ ONCE A DAY FOR 7 DAYS
     Dates: start: 20240409

REACTIONS (2)
  - Product dose omission issue [Unknown]
  - Product packaging difficult to open [Unknown]

NARRATIVE: CASE EVENT DATE: 20240409
